FAERS Safety Report 8308838-5 (Version None)
Quarter: 2012Q2

REPORT INFORMATION
  Report Type: 
  Country: None (occurrence: None)
  Receive Date: 20120424
  Receipt Date: 20120307
  Transmission Date: 20120825
  Serious: Yes (Other)
  Sender: FDA-Public Use
  Company Number: US-PERRIGO-12US001451

PATIENT
  Sex: Female

DRUGS (1)
  1. EFFER ANTACID PAIN TAB 421 [Suspect]
     Indication: ANTACID THERAPY
     Dosage: UNKNOWN, UNKNOWN
     Route: 048

REACTIONS (6)
  - PAIN IN EXTREMITY [None]
  - LOSS OF CONSCIOUSNESS [None]
  - DIZZINESS [None]
  - LOWER LIMB FRACTURE [None]
  - FALL [None]
  - WOUND HAEMORRHAGE [None]
